FAERS Safety Report 10391250 (Version 4)
Quarter: 2015Q1

REPORT INFORMATION
  Report Type: Report from Study
  Country: PR (occurrence: PR)
  Receive Date: 20140818
  Receipt Date: 20150126
  Transmission Date: 20150720
  Serious: Yes (Hospitalization, Other)
  Sender: FDA-Public Use
  Company Number: PR-BAYER-2014-088388

PATIENT
  Age: 55 Year
  Sex: Female

DRUGS (2)
  1. ADEMPAS [Suspect]
     Active Substance: RIOCIGUAT
     Indication: PULMONARY ARTERIAL HYPERTENSION
     Dosage: 1 MG, TID
     Route: 048
     Dates: start: 20140521
  2. ADEMPAS [Suspect]
     Active Substance: RIOCIGUAT
     Indication: PULMONARY ARTERIAL HYPERTENSION
     Dosage: 1.5 MG, TID
     Route: 048
     Dates: start: 20141125

REACTIONS (10)
  - Gait disturbance [None]
  - Tachycardia [None]
  - Gastritis [None]
  - Dizziness [None]
  - Gastrooesophageal reflux disease [None]
  - Dyspepsia [None]
  - Balance disorder [None]
  - Breast discomfort [None]
  - Burning sensation [None]
  - Fatigue [None]

NARRATIVE: CASE EVENT DATE: 20140609
